FAERS Safety Report 6468810-7 (Version None)
Quarter: 2009Q4

REPORT INFORMATION
  Report Type: 
  Country: None (occurrence: None)
  Receive Date: 20091203
  Receipt Date: 20090211
  Transmission Date: 20100525
  Serious: Yes (Death)
  Sender: FDA-Public Use
  Company Number: US-ELI_LILLY_AND_COMPANY-USA050393136

PATIENT
  Sex: Female
  Weight: 75.455 kg

DRUGS (12)
  1. CYMBALTA [Suspect]
     Indication: DEPRESSION
     Dosage: 60 MG, DAILY (1/D)
  2. METFORMIN HCL [Concomitant]
     Dosage: 500 MG, UNKNOWN
  3. DIGITEK [Concomitant]
     Dosage: 0.125 MG, 2/D
  4. ESGIC-PLUS [Concomitant]
     Dosage: UNK, UNKNOWN
  5. FLEXERIL [Concomitant]
     Dosage: UNK, UNKNOWN
  6. GEMFIBROZIL [Concomitant]
     Dosage: UNK, UNKNOWN
  7. WARFARIN SODIUM [Concomitant]
     Dosage: UNK, UNKNOWN
  8. MODURETIC 5-50 [Concomitant]
     Dosage: UNK, UNKNOWN
  9. TRAZODONE HCL [Concomitant]
     Dosage: UNK, UNKNOWN
  10. LORAZEPAM [Concomitant]
     Dosage: UNK, UNKNOWN
  11. ALEVE [Concomitant]
     Dosage: UNK, UNKNOWN
  12. POTASSIUM CHLORIDE [Concomitant]
     Dosage: UNK, UNKNOWN

REACTIONS (1)
  - ACCIDENTAL DEATH [None]
